FAERS Safety Report 4412794-X (Version None)
Quarter: 2004Q3

REPORT INFORMATION
  Report Type: 
  Country: None (occurrence: None)
  Receive Date: 20040727
  Receipt Date: 20040715
  Transmission Date: 20050211
  Serious: Yes (Hospitalization, Disabling)
  Sender: FDA-Public Use
  Company Number: 207088

PATIENT
  Age: 56 Year
  Sex: Male
  Weight: 79.4 kg

DRUGS (4)
  1. AVASTIN [Suspect]
     Indication: COLORECTAL CANCER METASTATIC
     Dosage: 5 MG/KG Q2W INTRAVENOUS
     Route: 042
     Dates: start: 20040421
  2. FLUOROURACIL [Suspect]
     Indication: COLORECTAL CANCER METASTATIC
     Dosage: Q2W INTRAVENOUS
     Route: 042
  3. LEUCOVORIN CALCIUM [Suspect]
     Indication: COLORECTAL CANCER METASTATIC
     Dosage: Q2W INTRAVENOUS
     Route: 042
  4. OXALIPLATIN (OXALIPLATIN) [Suspect]
     Indication: COLORECTAL CANCER METASTATIC
     Dosage: Q2W INTRAVENOUS
     Route: 042

REACTIONS (1)
  - CAECITIS [None]
